FAERS Safety Report 21551853 (Version 2)
Quarter: 2022Q4

REPORT INFORMATION
  Report Type: Spontaneous
  Country: CN (occurrence: CN)
  Receive Date: 20221104
  Receipt Date: 20221115
  Transmission Date: 20230113
  Serious: Yes (Other)
  Sender: FDA-Public Use
  Company Number: CN-BRISTOL-MYERS SQUIBB COMPANY-2022-128017

PATIENT
  Age: 5 Year
  Sex: Male

DRUGS (1)
  1. DASATINIB [Suspect]
     Active Substance: DASATINIB
     Indication: Acute lymphocytic leukaemia
     Dosage: UNKNOWN
     Route: 065

REACTIONS (4)
  - Enterobacter sepsis [Recovered/Resolved]
  - Histoplasmosis [Unknown]
  - Lower gastrointestinal haemorrhage [Not Recovered/Not Resolved]
  - Pneumonia fungal [Recovering/Resolving]
